FAERS Safety Report 6302748-0 (Version None)
Quarter: 2009Q3

REPORT INFORMATION
  Report Type: 
  Country: None (occurrence: None)
  Receive Date: 20090810
  Receipt Date: 20090729
  Transmission Date: 20100115
  Serious: Yes (Other)
  Sender: FDA-Public Use
  Company Number: PHEH2009US08391

PATIENT
  Sex: Male
  Weight: 72.562 kg

DRUGS (2)
  1. ZOMETA [Suspect]
     Indication: METASTASES TO BONE
     Dosage: 4 MG EVERY 4 WEEKS
     Route: 042
     Dates: start: 20081028, end: 20090630
  2. TAXOTERE [Concomitant]
     Indication: CHEMOTHERAPY
     Dosage: 60 MG 3 WEEKS ON, ONCE PER WEEK
     Route: 042
     Dates: start: 20070918, end: 20090630

REACTIONS (7)
  - BONE DISORDER [None]
  - DECREASED APPETITE [None]
  - EATING DISORDER [None]
  - GINGIVAL PAIN [None]
  - OSTEONECROSIS [None]
  - PAIN [None]
  - SWELLING [None]
